FAERS Safety Report 21205054 (Version 1)
Quarter: 2022Q3

REPORT INFORMATION
  Report Type: Spontaneous
  Country: FR (occurrence: FR)
  Receive Date: 20220812
  Receipt Date: 20220812
  Transmission Date: 20221027
  Serious: Yes (Other)
  Sender: FDA-Public Use
  Company Number: None

PATIENT
  Age: 67 Year
  Sex: Male
  Weight: 62 kg

DRUGS (6)
  1. LOSARTAN POTASSIUM [Suspect]
     Active Substance: LOSARTAN POTASSIUM
     Indication: Hypertension
     Dosage: THERAPY START DATE ASKU
     Route: 065
  2. ESCITALOPRAM [Suspect]
     Active Substance: ESCITALOPRAM OXALATE
     Indication: Mental disorder
     Dosage: THERAPY START DATE ASKU
     Route: 065
  3. COMIRNATY [Suspect]
     Active Substance: TOZINAMERAN
     Indication: COVID-19 immunisation
     Dosage: R1, COMIRNATY 30 MICROGRAMS/DOSE, DISPERSION FOR INJECTION. MRNA (MODIFIED NUCLEOSIDE) VACCINE AGAIN
     Route: 065
     Dates: start: 20220107, end: 20220107
  4. XANAX [Suspect]
     Active Substance: ALPRAZOLAM
     Indication: Mental disorder
     Dosage: THERAPY START DATE ASKU
     Route: 065
  5. LORAZEPAM [Suspect]
     Active Substance: LORAZEPAM
     Indication: Mental disorder
     Dosage: THERAPY START DATE ASKU
     Route: 065
  6. VAXZEVRIA [Concomitant]
     Active Substance: AZD-1222
     Indication: Product used for unknown indication
     Dosage: D1+D2, 1DF, FREQUENCY TIME 2TOTAL, DURATION 63DAYS, VAXZEVRIA, SUSPENSION INJECTABLE. VACCIN COVID-1
     Dates: start: 20210416, end: 20210618

REACTIONS (2)
  - Transient ischaemic attack [Recovered/Resolved]
  - Atrial fibrillation [Not Recovered/Not Resolved]

NARRATIVE: CASE EVENT DATE: 20220114
